FAERS Safety Report 6767937-X (Version None)
Quarter: 2010Q2

REPORT INFORMATION
  Report Type: 
  Country: None (occurrence: None)
  Receive Date: 20100614
  Receipt Date: 20100610
  Transmission Date: 20101027
  Serious: Yes (Hospitalization)
  Sender: FDA-Public Use
  Company Number: US-GILEAD-2010-0029744

PATIENT
  Sex: Male
  Weight: 74.91 kg

DRUGS (16)
  1. LETAIRIS [Suspect]
     Indication: PULMONARY ARTERIAL HYPERTENSION
     Route: 048
     Dates: start: 20100119
  2. OXYGEN [Concomitant]
  3. COUMADIN [Concomitant]
  4. METOLAZONE [Concomitant]
  5. TOPROL-XL [Concomitant]
  6. DILTIAZEM [Concomitant]
  7. DIGOXIN [Concomitant]
  8. COMBIVENT [Concomitant]
  9. ALBUTEROL [Concomitant]
  10. ADVAIR DISKUS 100/50 [Concomitant]
  11. FEXOFENADINE [Concomitant]
  12. FLOMOX [Concomitant]
  13. PLAQUENIL [Concomitant]
  14. VICODIN [Concomitant]
  15. POTASSIUM [Concomitant]
  16. VITAMIN D [Concomitant]

REACTIONS (1)
  - PNEUMONIA [None]
